FAERS Safety Report 11697658 (Version 16)
Quarter: 2016Q3

REPORT INFORMATION
  Report Type: Spontaneous
  Country: US (occurrence: US)
  Receive Date: 20151104
  Receipt Date: 20160929
  Transmission Date: 20161109
  Serious: Yes (Hospitalization, Other)
  Sender: FDA-Public Use
  Company Number: US-PFIZER INC-2015369458

PATIENT
  Age: 56 Year
  Sex: Female
  Weight: 72.56 kg

DRUGS (15)
  1. ZOLPIDEM [Concomitant]
     Active Substance: ZOLPIDEM\ZOLPIDEM TARTRATE
     Indication: SLEEP DISORDER
     Dosage: 10 MG, UNK
     Dates: start: 2015
  2. TRAMADOL WITH ACETAMINOPHEN [Concomitant]
     Indication: PAIN
     Dosage: 37.5/325 MG ONE TABLET 4 TIMES A DAY AS NEEDED
     Route: 048
     Dates: start: 2015
  3. LYRICA [Suspect]
     Active Substance: PREGABALIN
     Indication: BURNING SENSATION
     Dosage: 150MG IN AM AND 150 MG EVENING AND (2) 150 MG BY MOUTH AT BEDTIME
     Route: 048
  4. GLIMEPIRIDE. [Concomitant]
     Active Substance: GLIMEPIRIDE
     Indication: DIABETES MELLITUS
     Dosage: 2 MG, 1X/DAY (HALF IN MORNING AND HALF AFTER DINNER)
  5. ASPIRIN. [Concomitant]
     Active Substance: ASPIRIN
     Indication: CARDIOVASCULAR DISORDER
     Dosage: 80 MG, 1X/DAY
     Route: 048
     Dates: start: 201501
  6. LYRICA [Suspect]
     Active Substance: PREGABALIN
     Dosage: 600 MG, DAILY
  7. JANUVIA [Concomitant]
     Active Substance: SITAGLIPTIN PHOSPHATE
     Indication: DIABETES MELLITUS
     Dosage: 100 MG, 1X/DAY
  8. LYRICA [Suspect]
     Active Substance: PREGABALIN
     Indication: DIABETIC NEUROPATHY
     Dosage: 150 MG, 2X/DAY
     Route: 048
  9. LYRICA [Suspect]
     Active Substance: PREGABALIN
     Dosage: 200 MG, 3X/DAY
     Route: 048
  10. LYRICA [Suspect]
     Active Substance: PREGABALIN
     Dosage: 800 MG, DAILY
  11. LYRICA [Suspect]
     Active Substance: PREGABALIN
     Indication: NERVE INJURY
     Dosage: 200 MG, 3X/DAY
     Route: 048
  12. LYRICA [Suspect]
     Active Substance: PREGABALIN
     Indication: NEUROPATHY PERIPHERAL
     Dosage: 150 MG, 4X/DAY
     Route: 048
  13. LYRICA [Suspect]
     Active Substance: PREGABALIN
     Dosage: 200 MG, 3X/DAY
     Route: 048
     Dates: start: 2011
  14. LYRICA [Suspect]
     Active Substance: PREGABALIN
     Dosage: 200 MG, 3X/DAY
     Route: 048
  15. LYRICA [Suspect]
     Active Substance: PREGABALIN
     Indication: NEURALGIA
     Dosage: 150 MG, 1X/DAY
     Route: 048

REACTIONS (24)
  - Pain [Recovered/Resolved]
  - Depressed mood [Recovered/Resolved]
  - Blood triglycerides increased [Unknown]
  - Vomiting [Unknown]
  - Feeling hot [Unknown]
  - Condition aggravated [Unknown]
  - Dyspepsia [Recovered/Resolved]
  - Intentional overdose [Recovered/Resolved]
  - Prescribed overdose [Unknown]
  - Nerve injury [Unknown]
  - Mental fatigue [Unknown]
  - Neuropathy peripheral [Unknown]
  - Nausea [Unknown]
  - Malaise [Unknown]
  - Carpal tunnel syndrome [Recovered/Resolved]
  - Burning sensation [Recovered/Resolved]
  - Drug effect incomplete [Recovered/Resolved]
  - Drug withdrawal syndrome [Unknown]
  - Gait disturbance [Recovered/Resolved]
  - Headache [Unknown]
  - Decreased appetite [Recovered/Resolved]
  - Drug dispensing error [Recovered/Resolved]
  - Condition aggravated [Recovered/Resolved]
  - Eye pain [Unknown]

NARRATIVE: CASE EVENT DATE: 1998
